FAERS Safety Report 6613305-0 (Version None)
Quarter: 2010Q1

REPORT INFORMATION
  Report Type: 
  Country: None (occurrence: None)
  Receive Date: 20100304
  Receipt Date: 20100222
  Transmission Date: 20100710
  Serious: Yes (Hospitalization, Other)
  Sender: FDA-Public Use
  Company Number: PHHY2009BR41962

PATIENT
  Age: 58 Year
  Sex: Male

DRUGS (6)
  1. DIOCOMB SI [Suspect]
     Indication: HYPERTENSION
     Dosage: 1DF (160/20 MG) IN THE MORNING AND 1 DF IN THE AFTERNOON
     Route: 048
  2. DIOCOMB SI [Suspect]
     Indication: BLOOD CHOLESTEROL
  3. MONOCORDIL [Concomitant]
  4. DIVELOL [Concomitant]
  5. METFORMIN HYDROCHLORIDE [Concomitant]
     Indication: DIABETES MELLITUS
  6. SPIRONOLACTONE [Concomitant]

REACTIONS (4)
  - ARTHRALGIA [None]
  - FLUID RETENTION [None]
  - JOINT SWELLING [None]
  - KNEE OPERATION [None]
